FAERS Safety Report 8948645 (Version 1)
Quarter: 2012Q4

REPORT INFORMATION
  Report Type: Report from Study
  Country: KR (occurrence: KR)
  Receive Date: 20121206
  Receipt Date: 20121206
  Transmission Date: 20130627
  Serious: Yes (Hospitalization)
  Sender: FDA-Public Use
  Company Number: KR-SANOFI-AVENTIS-2012SA087630

PATIENT
  Age: 64 Year
  Sex: Female
  Weight: 66 kg

DRUGS (4)
  1. DOCETAXEL [Suspect]
     Indication: HER-2 POSITIVE BREAST CANCER
     Dosage: dose: 75 mg/m2
form: vial
     Route: 042
     Dates: start: 20100825
  2. TRASTUZUMAB [Suspect]
     Indication: HER-2 POSITIVE BREAST CANCER
     Dosage: dose: 8mg/kg
form: vial
     Route: 042
     Dates: start: 20100825
  3. CARBOPLATIN [Suspect]
     Indication: HER-2 POSITIVE BREAST CANCER
     Dosage: form: vial
dose: 6 AUC
     Route: 042
     Dates: start: 20100825
  4. AMLODIPINE (SALT NOT SPECIFIED) [Concomitant]
     Dates: start: 20100823

REACTIONS (2)
  - Hyponatraemia [Recovered/Resolved]
  - Neutropenia [Recovered/Resolved]
